FAERS Safety Report 12856324 (Version 1)
Quarter: 2016Q4

REPORT INFORMATION
  Report Type: Spontaneous
  Country: TR (occurrence: TR)
  Receive Date: 20161018
  Receipt Date: 20161018
  Transmission Date: 20170207
  Serious: Yes (Congenital Anomaly, Other)
  Sender: FDA-Public Use
  Company Number: TR-PAR PHARMACEUTICAL COMPANIES-2016SCPR016018

PATIENT
  Sex: Female
  Weight: 3.28 kg

DRUGS (1)
  1. LAMOTRIGINE. [Suspect]
     Active Substance: LAMOTRIGINE
     Indication: PRODUCT USED FOR UNKNOWN INDICATION
     Dosage: UNK UNK, UNKNOWN
     Route: 064

REACTIONS (4)
  - Ventricular septal defect [Unknown]
  - Foetal exposure during pregnancy [Unknown]
  - Coarctation of the aorta [Unknown]
  - Pulmonary hypertension [Unknown]
